APPROVED DRUG PRODUCT: VANCOMYCIN HYDROCHLORIDE
Active Ingredient: VANCOMYCIN HYDROCHLORIDE
Strength: EQ 1.5GM BASE/VIAL
Dosage Form/Route: INJECTABLE;INJECTION
Application: A062912 | Product #003
Applicant: HOSPIRA INC
Approved: Jul 10, 2020 | RLD: No | RS: Yes | Type: RX